FAERS Safety Report 7675618-3 (Version None)
Quarter: 2011Q3

REPORT INFORMATION
  Report Type: 
  Country: None (occurrence: None)
  Receive Date: 20110810
  Receipt Date: 20110729
  Transmission Date: 20111222
  Serious: Yes (Hospitalization, Other)
  Sender: FDA-Public Use
  Company Number: US-AMGEN-USASP2011031951

PATIENT
  Age: 61 Year
  Sex: Female
  Weight: 36.2 kg

DRUGS (14)
  1. ENBREL [Suspect]
     Indication: RHEUMATOID ARTHRITIS
     Dosage: 50 MG, QWK
     Route: 058
     Dates: start: 19990401
  2. CELEBREX [Concomitant]
     Dosage: 100 MG, BID
  3. ACETAMINOPHEN AND HYDROCODONE BITARTRATE [Concomitant]
     Dosage: UNK UNK, PRN
  4. NEURONTIN [Concomitant]
     Dosage: 300 MG, BID
  5. PAXIL [Concomitant]
     Dosage: 40 MG, QD
  6. ATROVENT [Concomitant]
     Dosage: UNK UNK, PRN
  7. METHOTREXATE [Concomitant]
     Dosage: UNK
  8. ALBUTEROL [Concomitant]
     Dosage: UNK UNK, PRN
  9. FLEXERIL [Concomitant]
     Dosage: 5 MG, TID
  10. FOLIC ACID [Concomitant]
     Dosage: UNK UNK, QD
  11. ZYRTEC [Concomitant]
     Dosage: UNK
  12. MUCINEX [Concomitant]
     Dosage: UNK
  13. MORPHINE [Concomitant]
     Dosage: UNK
  14. AMARYL [Concomitant]
     Dosage: UNK

REACTIONS (19)
  - ACUTE RESPIRATORY FAILURE [None]
  - JOINT INJURY [None]
  - TOOTH DISORDER [None]
  - CHRONIC OBSTRUCTIVE PULMONARY DISEASE [None]
  - TENDON RUPTURE [None]
  - FIBROMYALGIA [None]
  - MALNUTRITION [None]
  - RAYNAUD'S PHENOMENON [None]
  - RHEUMATOID ARTHRITIS [None]
  - FALL [None]
  - ACTIVITIES OF DAILY LIVING IMPAIRED [None]
  - THERAPEUTIC RESPONSE DECREASED [None]
  - ADJUSTMENT DISORDER WITH DEPRESSED MOOD [None]
  - MUSCLE RUPTURE [None]
  - PNEUMONIA [None]
  - PAIN [None]
  - SINUSITIS [None]
  - OSTEOPOROSIS [None]
  - INJECTION SITE PAIN [None]
